FAERS Safety Report 24678670 (Version 2)
Quarter: 2024Q4

REPORT INFORMATION
  Report Type: Report from Study
  Country: JP (occurrence: JP)
  Receive Date: 20241129
  Receipt Date: 20241226
  Transmission Date: 20250114
  Serious: Yes (Hospitalization)
  Sender: ASTELLAS
  Company Number: JP-ASTELLAS-2024-AER-020689

PATIENT
  Age: 74 Year
  Sex: Female

DRUGS (1)
  1. PADCEV [Suspect]
     Active Substance: ENFORTUMAB VEDOTIN\ENFORTUMAB VEDOTIN-EJFV
     Indication: Product used for unknown indication
     Route: 065

REACTIONS (1)
  - Skin disorder [Unknown]
